FAERS Safety Report 7933040-6 (Version None)
Quarter: 2011Q4

REPORT INFORMATION
  Report Type: 
  Country: None (occurrence: None)
  Receive Date: 20111122
  Receipt Date: 20111109
  Transmission Date: 20120403
  Serious: Yes (Hospitalization, Other)
  Sender: FDA-Public Use
  Company Number: US-ELI_LILLY_AND_COMPANY-US201104004994

PATIENT
  Sex: Female

DRUGS (12)
  1. FORTEO [Suspect]
     Dosage: 20 UG, QD
     Route: 065
  2. VITAMIN D [Concomitant]
  3. FORTEO [Suspect]
     Indication: OSTEOPOROSIS
     Dosage: 20 UG, QD
     Route: 065
     Dates: start: 20110404
  4. ASCORBIC ACID [Concomitant]
  5. DILANTIN [Concomitant]
     Dosage: 200 MG, UNK
  6. FORTEO [Suspect]
     Dosage: 20 UG, QD
     Route: 065
  7. DEPAKOTE [Concomitant]
  8. PHENOBARBITAL TAB [Concomitant]
     Dosage: 60 MG, UNK
  9. BUSPIRONE [Concomitant]
     Indication: NERVOUS SYSTEM DISORDER
     Dosage: 7 MG, TID
  10. MULTI-VITAMINS [Concomitant]
  11. FORTEO [Suspect]
     Dosage: 20 UG, QD
     Route: 065
  12. VITAMIN B-12 [Concomitant]

REACTIONS (34)
  - FEELING ABNORMAL [None]
  - ANXIETY [None]
  - HEADACHE [None]
  - NAUSEA [None]
  - PETIT MAL EPILEPSY [None]
  - RENAL DISORDER [None]
  - FEELING COLD [None]
  - MEDICAL DEVICE SITE REACTION [None]
  - INFREQUENT BOWEL MOVEMENTS [None]
  - BACK PAIN [None]
  - DYSPNOEA [None]
  - ARTHRALGIA [None]
  - FUNGAL INFECTION [None]
  - ACCIDENT [None]
  - MICTURITION URGENCY [None]
  - HYPOAESTHESIA [None]
  - DIARRHOEA [None]
  - ASTHENIA [None]
  - PAIN IN EXTREMITY [None]
  - INSOMNIA [None]
  - GASTROINTESTINAL DISORDER [None]
  - BODY TEMPERATURE INCREASED [None]
  - DYSURIA [None]
  - MEDICATION ERROR [None]
  - KIDNEY INFECTION [None]
  - URETERIC OBSTRUCTION [None]
  - RECTAL TENESMUS [None]
  - DEVICE DISLOCATION [None]
  - PAIN [None]
  - DIZZINESS [None]
  - HYPOPHAGIA [None]
  - ORAL FUNGAL INFECTION [None]
  - FATIGUE [None]
  - WEIGHT DECREASED [None]
